FAERS Safety Report 10946146 (Version 2)
Quarter: 2015Q3

REPORT INFORMATION
  Report Type: Spontaneous
  Country: US (occurrence: US)
  Receive Date: 20150323
  Receipt Date: 20150804
  Transmission Date: 20151125
  Serious: Yes (Life-Threatening, Hospitalization)
  Sender: FDA-Public Use
  Company Number: US-BAYER-2015-048316

PATIENT
  Age: 21 Year
  Sex: Female
  Weight: 78.46 kg

DRUGS (5)
  1. FERROUS SULFATE [Concomitant]
     Active Substance: FERROUS SULFATE\FERROUS SULFATE, DRIED
  2. DOCUSATE [Concomitant]
     Active Substance: DOCUSATE
  3. MIRENA [Suspect]
     Active Substance: LEVONORGESTREL
     Indication: CONTRACEPTION
     Dosage: 20 MCG/24HR, CONT
     Route: 015
     Dates: start: 20100312, end: 20100426
  4. IBUPROFEN. [Concomitant]
     Active Substance: IBUPROFEN
  5. PRENATAL VITAMINS [VIT C,B5,B12,D2,B3,B6,RETINOL PALMIT,B2,B1 MONO [Concomitant]

REACTIONS (10)
  - Scar [None]
  - Depression [None]
  - Abdominal pain lower [None]
  - Pain [None]
  - Injury [None]
  - Anhedonia [None]
  - Emotional distress [None]
  - Anxiety [None]
  - General physical health deterioration [None]
  - Uterine perforation [None]

NARRATIVE: CASE EVENT DATE: 2010
